FAERS Safety Report 24656601 (Version 4)
Quarter: 2025Q1

REPORT INFORMATION
  Report Type: Report from Study
  Country: CA (occurrence: CA)
  Receive Date: 20241124
  Receipt Date: 20250314
  Transmission Date: 20250408
  Serious: Yes (Other)
  Sender: CSL BEHRING
  Company Number: CA-BEH-2024178219

PATIENT
  Age: 13 Year
  Sex: Male
  Weight: 37.9 kg

DRUGS (7)
  1. HIZENTRA [Suspect]
     Active Substance: HUMAN IMMUNOGLOBULIN G
     Indication: Primary immunodeficiency syndrome
     Dosage: UNK UNK, (STRENGTH: 2G) QW
     Route: 065
     Dates: start: 20240830
  2. HIZENTRA [Suspect]
     Active Substance: HUMAN IMMUNOGLOBULIN G
     Dosage: UNK UNK, (STRENGTH: 2G) QW
     Route: 065
     Dates: start: 20240830
  3. HIZENTRA [Suspect]
     Active Substance: HUMAN IMMUNOGLOBULIN G
     Dosage: 3 G, QW(DOSE INCREASED)
     Route: 065
     Dates: start: 20241128
  4. HIZENTRA [Suspect]
     Active Substance: HUMAN IMMUNOGLOBULIN G
     Dosage: UNK UNK, (STRENGTH: 3G) QW
     Route: 065
     Dates: start: 20240830
  5. HIZENTRA [Suspect]
     Active Substance: HUMAN IMMUNOGLOBULIN G
     Dosage: UNK UNK, (STRENGTH: 3G) QW
     Route: 058
     Dates: start: 20240830
  6. VITAMIN D [Concomitant]
     Active Substance: VITAMIN D NOS
  7. EMLA [Concomitant]
     Active Substance: LIDOCAINE\PRILOCAINE

REACTIONS (10)
  - Angina pectoris [Unknown]
  - Injection site oedema [Unknown]
  - Cough [Unknown]
  - Pain in extremity [Unknown]
  - Pain in extremity [Unknown]
  - Drug monitoring procedure incorrectly performed [Unknown]
  - Fatigue [Unknown]
  - Loss of personal independence in daily activities [Unknown]
  - Application site erythema [Unknown]
  - Application site swelling [Unknown]

NARRATIVE: CASE EVENT DATE: 20240830
